FAERS Safety Report 6466545-8 (Version None)
Quarter: 2009Q4

REPORT INFORMATION
  Report Type: 
  Country: None (occurrence: None)
  Receive Date: 20091201
  Receipt Date: 20091201
  Transmission Date: 20100525
  Serious: Yes (Hospitalization)
  Sender: FDA-Public Use
  Company Number: None

PATIENT
  Sex: Female

DRUGS (2)
  1. DURAGESIC 25 MCG JANSSEN [Suspect]
     Indication: PAIN
     Dosage: ONE PATCH Q 72 HOURS TRANSDERMAL
     Route: 062
     Dates: start: 20091125, end: 20091126
  2. OXYCODONE HCL AND ACETAMINOPHEN [Concomitant]

REACTIONS (6)
  - ASTHENIA [None]
  - CHEST PAIN [None]
  - DIZZINESS [None]
  - HEADACHE [None]
  - HYPOAESTHESIA [None]
  - MUSCLE TIGHTNESS [None]
